FAERS Safety Report 7711241-X (Version None)
Quarter: 2011Q3

REPORT INFORMATION
  Report Type: 
  Country: None (occurrence: None)
  Receive Date: 20110826
  Receipt Date: 20110815
  Transmission Date: 20111222
  Serious: No
  Sender: FDA-Public Use
  Company Number: US-BIOGENIDEC-2011BI031249

PATIENT
  Sex: Female

DRUGS (3)
  1. SYMBICORT [Concomitant]
     Indication: ASTHMA
  2. ADVAIR DISKUS 100/50 [Concomitant]
     Indication: ASTHMA
  3. AVONEX [Suspect]
     Indication: MULTIPLE SCLEROSIS
     Route: 030
     Dates: start: 20110427

REACTIONS (6)
  - GASTRITIS [None]
  - DECREASED APPETITE [None]
  - NAUSEA [None]
  - GASTROOESOPHAGEAL REFLUX DISEASE [None]
  - ABDOMINAL PAIN UPPER [None]
  - VOMITING [None]
